FAERS Safety Report 20032827 (Version 1)
Quarter: 2021Q4

REPORT INFORMATION
  Report Type: Spontaneous
  Country: FR (occurrence: FR)
  Receive Date: 20211104
  Receipt Date: 20211104
  Transmission Date: 20220303
  Serious: Yes (Disabling)
  Sender: FDA-Public Use
  Company Number: FR-ABBVIE-21K-056-4147054-00

PATIENT
  Sex: Female

DRUGS (1)
  1. VALPROATE SODIUM [Suspect]
     Active Substance: VALPROATE SODIUM
     Indication: Maternal exposure timing unspecified
     Route: 064

REACTIONS (6)
  - Kyphosis [Not Recovered/Not Resolved]
  - Emotional disorder of childhood [Not Recovered/Not Resolved]
  - Lordosis [Not Recovered/Not Resolved]
  - Attention deficit hyperactivity disorder [Not Recovered/Not Resolved]
  - Disturbance in social behaviour [Not Recovered/Not Resolved]
  - Foetal exposure during pregnancy [Unknown]

NARRATIVE: CASE EVENT DATE: 20070501
